FAERS Safety Report 4312686-0 (Version None)
Quarter: 2004Q1

REPORT INFORMATION
  Report Type: 
  Country: None (occurrence: None)
  Receive Date: 20040302
  Receipt Date: 20031121
  Transmission Date: 20041129
  Serious: No
  Sender: FDA-Public Use
  Company Number: 701341

PATIENT
  Age: 60 Year
  Sex: Female

DRUGS (10)
  1. AMEVIVE [Suspect]
     Indication: PSORIASIS
     Dosage: 15 MG QW IM
     Route: 030
     Dates: start: 20031104, end: 20031113
  2. NEORAL [Concomitant]
  3. ALLOPURINOL [Concomitant]
  4. LASIX [Concomitant]
  5. COLCHICINE [Concomitant]
  6. VANCOMYCIN HYDROCHLORIDE [Concomitant]
  7. TOPROL-XL [Concomitant]
  8. CLOBETASOL PROPIONATE [Concomitant]
  9. OLUX [Concomitant]
  10. DIPROLENE [Concomitant]

REACTIONS (4)
  - DRY SKIN [None]
  - ERYTHEMA [None]
  - LIP DRY [None]
  - URTICARIA [None]
